FAERS Safety Report 6285136-5 (Version None)
Quarter: 2009Q3

REPORT INFORMATION
  Report Type: 
  Country: None (occurrence: None)
  Receive Date: 20090727
  Receipt Date: 20090715
  Transmission Date: 20100115
  Serious: Yes (Other)
  Sender: FDA-Public Use
  Company Number: HR-PFIZER INC-2009241214

PATIENT
  Age: 59 Year

DRUGS (4)
  1. DALACIN [Suspect]
     Indication: TOOTH INFECTION
     Dosage: 300 MG, 3X/DAY
     Route: 048
  2. TRITACE [Concomitant]
     Dosage: 5 MG, UNK
     Dates: start: 20090101
  3. CONCOR COR [Concomitant]
     Dosage: 1.25 UNK, UNK
     Dates: start: 20090101
  4. LOVAZA [Concomitant]
     Dosage: UNK
     Dates: start: 20090101

REACTIONS (2)
  - DIARRHOEA [None]
  - HAEMATOCHEZIA [None]
